FAERS Safety Report 10530974 (Version 1)
Quarter: 2014Q4

REPORT INFORMATION
  Report Type: Spontaneous
  Country: US (occurrence: None)
  Receive Date: 20141020
  Receipt Date: 20141020
  Transmission Date: 20150528
  Serious: No
  Sender: FDA-Public Use
  Company Number: None

PATIENT

DRUGS (2)
  1. XYLOCAINE WITH EPINEPHRINE [Suspect]
     Active Substance: EPINEPHRINE BITARTRATE\LIDOCAINE HYDROCHLORIDE
     Dosage: INJECTABLE, INJECTION, 2 % (20 MG/ML), SINGLE DOSE VIAL, 20 ML
  2. XYLOCAINE WITH EPINEPHRINE [Suspect]
     Active Substance: EPINEPHRINE BITARTRATE\LIDOCAINE HYDROCHLORIDE
     Dosage: INJECTABLE, INJECTION, 2 % (10 MG/ML), MULTIPLE DOSE VIAL, 20 ML

REACTIONS (3)
  - Intercepted drug dispensing error [None]
  - Product name confusion [None]
  - Product packaging confusion [None]
